FAERS Safety Report 10268575 (Version 1)
Quarter: 2014Q2

REPORT INFORMATION
  Report Type: Spontaneous
  Country: CA (occurrence: CA)
  Receive Date: 20140630
  Receipt Date: 20140630
  Transmission Date: 20141212
  Serious: Yes (Other)
  Sender: FDA-Public Use
  Company Number: CA-PFIZER INC-2014175814

PATIENT
  Sex: Female

DRUGS (2)
  1. PRISTIQ [Suspect]
     Indication: ANXIETY
     Dosage: 50 MG, DAILY
     Route: 048
     Dates: start: 2013, end: 201403
  2. PRISTIQ [Suspect]
     Dosage: 25 MG, DAILY
     Route: 048
     Dates: start: 201403, end: 201406

REACTIONS (5)
  - Tendon disorder [Recovering/Resolving]
  - Gait disturbance [Recovered/Resolved]
  - Middle insomnia [Recovered/Resolved]
  - Pain [Recovered/Resolved]
  - Intentional product misuse [Recovered/Resolved]
